FAERS Safety Report 9783774 (Version 2)
Quarter: 2014Q1

REPORT INFORMATION
  Report Type: Spontaneous
  Country: US (occurrence: US)
  Receive Date: 20131226
  Receipt Date: 20140124
  Transmission Date: 20141002
  Serious: No
  Sender: FDA-Public Use
  Company Number: US-PFIZER INC-2013366508

PATIENT
  Sex: Male

DRUGS (1)
  1. ADVIL [Suspect]
     Dosage: UNK

REACTIONS (6)
  - Headache [Unknown]
  - Pain [Unknown]
  - Epistaxis [Unknown]
  - Arthralgia [Unknown]
  - Abdominal pain upper [Unknown]
  - Skin reaction [Unknown]
